FAERS Safety Report 4844989-5 (Version None)
Quarter: 2005Q4

REPORT INFORMATION
  Report Type: 
  Country: None (occurrence: None)
  Receive Date: 20051205
  Receipt Date: 20051005
  Transmission Date: 20060501
  Serious: Yes (Death)
  Sender: FDA-Public Use
  Company Number: US-MERCK-0510USA04590

PATIENT
  Age: 93 Year
  Sex: Female
  Weight: 48 kg

DRUGS (19)
  1. ONE-A-DAY EXTRAS VITAMIN E [Concomitant]
     Route: 065
  2. ASCORBIC ACID [Concomitant]
     Route: 065
  3. ASPIRIN [Concomitant]
     Route: 065
  4. [THERAPY UNSPECIFIED] [Concomitant]
     Indication: URINARY TRACT INFECTION
     Route: 065
  5. HIPREX [Concomitant]
     Route: 065
  6. ARICEPT [Concomitant]
     Route: 048
  7. LEVAQUIN [Concomitant]
     Route: 048
  8. LEVAQUIN [Concomitant]
     Route: 048
  9. ZOLOFT [Concomitant]
     Route: 065
  10. VIOXX [Suspect]
     Indication: ARTHRITIS
     Route: 048
     Dates: start: 20010101, end: 20030101
  11. FOSAMAX [Concomitant]
     Route: 048
  12. K-DUR 10 [Concomitant]
     Route: 048
  13. ONE-A-DAY ESSENTIAL VITAMINS [Concomitant]
     Route: 048
  14. NITROFURANT [Concomitant]
     Route: 065
  15. CATAPRES-TTS-1 [Concomitant]
     Route: 065
  16. ADALAT [Concomitant]
     Route: 065
  17. ADALAT [Concomitant]
     Route: 065
  18. REMINYL [Concomitant]
     Route: 065
  19. PLETAL [Concomitant]
     Route: 065

REACTIONS (5)
  - AORTIC ANEURYSM [None]
  - CARDIOVASCULAR DISORDER [None]
  - CHEST PAIN [None]
  - DEATH [None]
  - EMOTIONAL DISTRESS [None]
